FAERS Safety Report 8774077 (Version 1)
Quarter: 2012Q4

REPORT INFORMATION
  Report Type: 
  Country: US (occurrence: US)
  Receive Date: 20120829
  Receipt Date: 20120829
  Transmission Date: 20130627
  Serious: Yes (Life-Threatening)
  Sender: FDA-Public Use
  Company Number: US-PFIZER INC-2012208754

PATIENT
  Age: 47 Year
  Sex: Female
  Weight: 75.28 kg

DRUGS (3)
  1. ROBITUSSIN COUGH AND CHEST CONGESTION DM MAX [Suspect]
     Indication: COUGH
     Dosage: two teaspoonful daily
     Dates: start: 20120820, end: 20120822
  2. ROBITUSSIN COUGH AND CHEST CONGESTION DM MAX [Suspect]
     Indication: RESPIRATORY TRACT CONGESTION
  3. FLOVENT [Concomitant]
     Indication: ASTHMA
     Dosage: UNK

REACTIONS (1)
  - Hypersensitivity [Recovering/Resolving]
